FAERS Safety Report 15488921 (Version 5)
Quarter: 2019Q3

REPORT INFORMATION
  Report Type: Spontaneous
  Country: US (occurrence: US)
  Receive Date: 20181011
  Receipt Date: 20190923
  Transmission Date: 20191004
  Serious: Yes (Other)
  Sender: FDA-Public Use
  Company Number: US-PFIZER INC-2018281876

PATIENT
  Age: 73 Year
  Sex: Female
  Weight: 83.91 kg

DRUGS (4)
  1. LYRICA [Suspect]
     Active Substance: PREGABALIN
     Dosage: 50 MG, DAILY
     Route: 048
  2. LYRICA [Suspect]
     Active Substance: PREGABALIN
     Indication: FIBROMYALGIA
     Dosage: 2 DF, DAILY [WENT DOWN TO 2 A DAY]
  3. LYRICA [Suspect]
     Active Substance: PREGABALIN
     Indication: NEUROPATHY PERIPHERAL
     Dosage: 3 DF, DAILY [TAKING 3 A DAY]
  4. LYRICA [Suspect]
     Active Substance: PREGABALIN
     Dosage: 1 DF, DAILY [DOING 1 A DAY]

REACTIONS (11)
  - Dizziness [Recovering/Resolving]
  - Intentional product use issue [Unknown]
  - Rib fracture [Unknown]
  - Wrist fracture [Unknown]
  - Stomatitis [Unknown]
  - Fall [Recovering/Resolving]
  - Product dispensing error [Unknown]
  - Drug hypersensitivity [Unknown]
  - Swelling face [Unknown]
  - Therapeutic response unexpected [Unknown]
  - Weight increased [Unknown]

NARRATIVE: CASE EVENT DATE: 201810
